FAERS Safety Report 6449017-6 (Version None)
Quarter: 2009Q4

REPORT INFORMATION
  Report Type: 
  Country: None (occurrence: None)
  Receive Date: 20091120
  Receipt Date: 20091116
  Transmission Date: 20100525
  Serious: Yes (Other)
  Sender: FDA-Public Use
  Company Number: B0599411A

PATIENT
  Sex: Male

DRUGS (3)
  1. RELENZA [Suspect]
     Indication: INFLUENZA
     Dosage: 10MG TWICE PER DAY
     Route: 055
     Dates: start: 20091019, end: 20091023
  2. MEDICON [Concomitant]
     Route: 048
     Dates: start: 20091019
  3. PERIACTIN [Concomitant]
     Route: 048
     Dates: start: 20091019

REACTIONS (1)
  - HALLUCINATION [None]
